FAERS Safety Report 6767656-X (Version None)
Quarter: 2010Q2

REPORT INFORMATION
  Report Type: 
  Country: None (occurrence: None)
  Receive Date: 20100610
  Receipt Date: 20100603
  Transmission Date: 20101027
  Serious: Yes (Other)
  Sender: FDA-Public Use
  Company Number: CL-121-2010

PATIENT
  Age: 67 Year
  Sex: Male

DRUGS (1)
  1. ONDANSETRON HCL [Suspect]
     Indication: VOMITING

REACTIONS (3)
  - DRUG WITHDRAWAL SYNDROME [None]
  - FLUSHING [None]
  - TREMOR [None]
